FAERS Safety Report 5270393-4 (Version None)
Quarter: 2007Q1

REPORT INFORMATION
  Report Type: 
  Country: None (occurrence: None)
  Receive Date: 20070320
  Receipt Date: 20070319
  Transmission Date: 20070707
  Serious: Yes (Death, Hospitalization)
  Sender: FDA-Public Use
  Company Number: IT-ROXANE LABORATORIES, INC-2007-BP-03714RO

PATIENT
  Age: 46 Year
  Sex: Female

DRUGS (2)
  1. DICLOFENAC SODIUM [Suspect]
     Indication: ARTHRITIS
     Dosage: 2 DOSES
     Route: 030
  2. KETOROLAC [Suspect]
     Indication: ARTHRITIS
     Dosage: 1 DOSE
     Route: 030

REACTIONS (2)
  - MULTI-ORGAN FAILURE [None]
  - NECROTISING FASCIITIS [None]
